FAERS Safety Report 8406901-1 (Version None)
Quarter: 2012Q2

REPORT INFORMATION
  Report Type: 
  Country: None (occurrence: None)
  Receive Date: 20120529
  Receipt Date: 20040420
  Transmission Date: 20120825
  Serious: Yes (Other)
  Sender: FDA-Public Use
  Company Number: 02100-JPN-04-0065

PATIENT
  Age: 37 Year
  Sex: Male
  Weight: 63 kg

DRUGS (10)
  1. NORVASC [Suspect]
     Indication: HYPERTENSION
     Dosage: 5 MG, QD, ORAL
     Route: 048
     Dates: start: 20040219, end: 20040318
  2. PLETAL [Suspect]
     Indication: CEREBRAL INFARCTION
     Dosage: 100 MG, BID, ORAL
     Route: 048
     Dates: start: 20031219, end: 20040318
  3. GLUCOBAY [Concomitant]
  4. LAC B (LACTOBACILLUS BIFIDUS, LYOPHILIZED) [Concomitant]
  5. CANDESARTAN CILEXETIL [Suspect]
     Indication: HYPERTENSION
     Dosage: 8 MG, QD, ORAL ; 12 MG, QD, ORAL
     Route: 048
     Dates: start: 20040302, end: 20040101
  6. CANDESARTAN CILEXETIL [Suspect]
     Indication: HYPERTENSION
     Dosage: 8 MG, QD, ORAL ; 12 MG, QD, ORAL
     Route: 048
     Dates: start: 20040101, end: 20040318
  7. CARDENALIN (DOXOZOSIN MESILATE) [Concomitant]
  8. GLYBURIDE [Concomitant]
  9. NOVOLIN R [Concomitant]
  10. CEFACLOR [Concomitant]

REACTIONS (3)
  - GRANULOCYTOPENIA [None]
  - DISSEMINATED INTRAVASCULAR COAGULATION [None]
  - BACTERIAL INFECTION [None]
